FAERS Safety Report 4992954-X (Version None)
Quarter: 2006Q1

REPORT INFORMATION
  Report Type: 
  Country: None (occurrence: None)
  Receive Date: 20060313
  Receipt Date: 20060111
  Transmission Date: 20060701
  Serious: No
  Sender: FDA-Public Use
  Company Number: 2005-BP-21758BP

PATIENT
  Age: 69 Year
  Sex: Male

DRUGS (4)
  1. SPIRIVA [Suspect]
     Indication: BRONCHOSPASM
     Dosage: 18 MCG (18 MCG,1 CAP QD 1 PUFF),IH
  2. PAXIL [Concomitant]
  3. WELLBUTRIN [Concomitant]
  4. CARDURA [Concomitant]

REACTIONS (4)
  - COUGH [None]
  - DRY MOUTH [None]
  - ODYNOPHAGIA [None]
  - PHARYNGOLARYNGEAL PAIN [None]
